FAERS Safety Report 14939777 (Version 1)
Quarter: 2018Q2

REPORT INFORMATION
  Report Type: Spontaneous
  Country: US (occurrence: US)
  Receive Date: 20180507
  Receipt Date: 20180507
  Transmission Date: 20180711
  Serious: Yes (Other)
  Sender: FDA-Public Use
  Company Number: None

PATIENT
  Age: 49 Year
  Sex: Female
  Weight: 84.6 kg

DRUGS (16)
  1. LOVENOX [Concomitant]
     Active Substance: ENOXAPARIN SODIUM
  2. MAXALT-MLT [Concomitant]
     Active Substance: RIZATRIPTAN BENZOATE
  3. NAMENDA [Concomitant]
     Active Substance: MEMANTINE HYDROCHLORIDE
  4. ROBAXIN [Concomitant]
     Active Substance: METHOCARBAMOL
  5. DECADRON [Concomitant]
     Active Substance: DEXAMETHASONE
  6. AFINITOR [Suspect]
     Active Substance: EVEROLIMUS
     Indication: BRAIN NEOPLASM MALIGNANT
     Route: 048
     Dates: start: 20180308, end: 20180507
  7. VITAMIN D [Concomitant]
     Active Substance: CHOLECALCIFEROL
  8. KEPPRA [Concomitant]
     Active Substance: LEVETIRACETAM
  9. LAMICTAL [Concomitant]
     Active Substance: LAMOTRIGINE
  10. PEPCID [Concomitant]
     Active Substance: FAMOTIDINE
  11. ATIVAN [Concomitant]
     Active Substance: LORAZEPAM
  12. PROCHLORPERAZINE. [Concomitant]
     Active Substance: PROCHLORPERAZINE
  13. TEMODAR [Concomitant]
     Active Substance: TEMOZOLOMIDE
  14. TOPIRAMATE. [Concomitant]
     Active Substance: TOPIRAMATE
  15. ZOFRAN [Concomitant]
     Active Substance: ONDANSETRON HYDROCHLORIDE
  16. OSCAL [Concomitant]
     Active Substance: CALCIUM CARBONATE

REACTIONS (1)
  - Disease progression [None]
